FAERS Safety Report 25679321 (Version 1)
Quarter: 2025Q3

REPORT INFORMATION
  Report Type: Spontaneous
  Country: US (occurrence: US)
  Receive Date: 20250814
  Receipt Date: 20250814
  Transmission Date: 20251020
  Serious: No
  Sender: BIOGEN
  Company Number: US-BIOGEN-2025BI01320215

PATIENT
  Sex: Female

DRUGS (30)
  1. PLEGRIDY [Suspect]
     Active Substance: PEGINTERFERON BETA-1A
     Indication: Multiple sclerosis
     Route: 050
  2. PLEGRIDY [Suspect]
     Active Substance: PEGINTERFERON BETA-1A
  3. BIOTIN [Concomitant]
     Active Substance: BIOTIN
     Route: 050
  4. MELATONIN [Concomitant]
     Active Substance: MELATONIN
     Route: 050
  5. VITAMIN C [Concomitant]
     Active Substance: ASCORBIC ACID
     Route: 050
  6. VITAMIN E [Concomitant]
     Active Substance: .ALPHA.-TOCOPHEROL
     Route: 050
  7. GINKGO [Concomitant]
     Active Substance: GINKGO
     Route: 050
  8. KRILL OIL [Concomitant]
     Active Substance: DIETARY SUPPLEMENT\KRILL OIL
     Route: 050
  9. PROBIOTICS NOS [Concomitant]
     Active Substance: PROBIOTICS NOS
     Route: 050
  10. HERBALS\TURMERIC [Concomitant]
     Active Substance: HERBALS\TURMERIC
     Route: 050
  11. AMANTADINE HYDROCHLORIDE [Concomitant]
     Active Substance: AMANTADINE HYDROCHLORIDE
     Route: 050
  12. CELEXA [Concomitant]
     Active Substance: CITALOPRAM HYDROBROMIDE
     Route: 050
  13. HYDROCODONE BITARTRATE/AC [Concomitant]
     Route: 050
  14. POTASSIUM CHLORIDE [Concomitant]
     Active Substance: POTASSIUM CHLORIDE
     Route: 050
  15. LISINOPRIL [Concomitant]
     Active Substance: LISINOPRIL
     Route: 050
  16. TIZANIDINE HYDROCHLORIDE [Concomitant]
     Active Substance: TIZANIDINE HYDROCHLORIDE
     Route: 050
  17. MORPHINE SULFATE [Concomitant]
     Active Substance: MORPHINE SULFATE
     Route: 050
  18. PILOCARPINE HYDROCHLORIDE [Concomitant]
     Active Substance: PILOCARPINE HYDROCHLORIDE
     Route: 050
  19. TRAZODONE HCL [Concomitant]
     Active Substance: TRAZODONE HYDROCHLORIDE
     Route: 050
  20. PRAZOSIN HYDROCHLORIDE [Concomitant]
     Active Substance: PRAZOSIN HYDROCHLORIDE
     Route: 050
  21. LEVOTHYROXINE SODIUM [Concomitant]
     Active Substance: LEVOTHYROXINE SODIUM
     Route: 050
  22. ASPIRIN [Concomitant]
     Active Substance: ASPIRIN
     Route: 050
  23. TYLENOL [Concomitant]
     Active Substance: ACETAMINOPHEN
     Route: 050
  24. ASTAXANTHIN [Concomitant]
     Active Substance: ASTAXANTHIN
     Route: 050
  25. GUAIFENESIN [Concomitant]
     Active Substance: GUAIFENESIN
     Route: 050
  26. OXITRIPTAN [Concomitant]
     Active Substance: OXITRIPTAN
     Route: 050
  27. GLUCOSAMINE [Concomitant]
     Active Substance: GLUCOSAMINE
     Route: 050
  28. DIPHENHYDRAMINE [Concomitant]
     Active Substance: DIPHENHYDRAMINE
     Route: 050
  29. VITAMIN B12 [Concomitant]
     Active Substance: CYANOCOBALAMIN
     Route: 050
  30. ALBUTEROL [Concomitant]
     Active Substance: ALBUTEROL
     Route: 050

REACTIONS (1)
  - Multiple sclerosis [Unknown]
